FAERS Safety Report 8293045-5 (Version None)
Quarter: 2012Q2

REPORT INFORMATION
  Report Type: 
  Country: None (occurrence: None)
  Receive Date: 20120417
  Receipt Date: 20120118
  Transmission Date: 20120825
  Serious: No
  Sender: FDA-Public Use
  Company Number: US-ASTRAZENECA-2011SE00502

PATIENT
  Age: 61 Year
  Sex: Female

DRUGS (4)
  1. NEXIUM [Suspect]
     Indication: GASTROOESOPHAGEAL REFLUX DISEASE
     Route: 048
  2. OMEPRAZOLE [Suspect]
     Dosage: PRILOSEC
     Route: 048
  3. TRAZODONE HCL [Concomitant]
  4. OMEPRAZOLE [Suspect]
     Route: 048

REACTIONS (14)
  - APHAGIA [None]
  - ABDOMINAL DISCOMFORT [None]
  - DRUG INEFFECTIVE [None]
  - ADVERSE DRUG REACTION [None]
  - FATIGUE [None]
  - NAUSEA [None]
  - ABDOMINAL PAIN [None]
  - DRUG DOSE OMISSION [None]
  - GASTROOESOPHAGEAL REFLUX DISEASE [None]
  - GASTRIC DISORDER [None]
  - ANXIETY [None]
  - IRRITABLE BOWEL SYNDROME [None]
  - HEAT EXHAUSTION [None]
  - ABDOMINAL PAIN UPPER [None]
